FAERS Safety Report 16600519 (Version 1)
Quarter: 2019Q3

REPORT INFORMATION
  Report Type: Spontaneous
  Country: FR (occurrence: FR)
  Receive Date: 20190719
  Receipt Date: 20190719
  Transmission Date: 20191004
  Serious: Yes (Hospitalization)
  Sender: FDA-Public Use
  Company Number: FR-PFIZER INC-2019304064

PATIENT
  Age: 6 Year
  Sex: Male
  Weight: 30 kg

DRUGS (24)
  1. ETOPOSIDE MYLAN [Suspect]
     Active Substance: ETOPOSIDE
     Indication: NEUROBLASTOMA
     Dosage: 184 MG*2/CURE ACCORDING TO PROTOCOL
     Route: 042
     Dates: start: 20190409, end: 20190613
  2. VANCOMYCIN [Concomitant]
     Active Substance: VANCOMYCIN
     Dosage: 300 MG, 3X/DAY
     Route: 042
  3. MOVICOL [Concomitant]
     Active Substance: POLYETHYLENE GLYCOL 3350\POTASSIUM CHLORIDE\SODIUM BICARBONATE\SODIUM CHLORIDE
     Dosage: 2 SACHETS, 2X/DAY
     Route: 048
  4. PEDIAVEN AP HP NOUVEAU NE 1 [Concomitant]
     Dosage: 60 ML/H
  5. MORPHINE [Concomitant]
     Active Substance: MORPHINE
     Dosage: 0.8 MG, PCA
     Route: 040
  6. ENDOXAN [CYCLOPHOSPHAMIDE MONOHYDRATE] [Suspect]
     Active Substance: CYCLOPHOSPHAMIDE
     Indication: NEUROBLASTOMA
     Dosage: 1100 MG*2/CURE ACCORDING TO PROTOCOL
     Route: 042
     Dates: start: 20190429, end: 20190613
  7. VINCRISTINE SULFATE. [Suspect]
     Active Substance: VINCRISTINE SULFATE
     Indication: NEUROBLASTOMA
     Dosage: 1.60MG*1/CURE ACCORDING TO PROTOCOL
     Route: 042
     Dates: start: 20190409, end: 20190612
  8. ONDANSETRON [Concomitant]
     Active Substance: ONDANSETRON
     Dosage: 8 MG, 2X/DAY
     Route: 042
  9. ALIZAPRIDE [Concomitant]
     Active Substance: ALIZAPRIDE
     Dosage: 30 MG, 3X/DAY
     Route: 042
  10. TRANDATE [Concomitant]
     Active Substance: LABETALOL HYDROCHLORIDE
     Dosage: 1-0-1
     Route: 048
  11. ALPRAZOLAM. [Concomitant]
     Active Substance: ALPRAZOLAM
     Dosage: 0.25 MG, IN THE EVENINGS, IF NEEDED
     Route: 048
  12. MAGNESIUM SULFATE. [Concomitant]
     Active Substance: MAGNESIUM SULFATE
     Dosage: 1 ML/H
     Route: 042
  13. VITAMIN K1 [Concomitant]
     Active Substance: PHYTONADIONE
     Dosage: 10 MG, ON MONDAYS
     Route: 042
  14. IMIPENEM AND CILASTATIN [Concomitant]
     Active Substance: CILASTATIN SODIUM\IMIPENEM
     Dosage: 750 MG, 4X/DAY
     Route: 042
  15. PARACETAMOL [Concomitant]
     Active Substance: ACETAMINOPHEN
     Dosage: 300 MG, 6X/DAY
     Route: 042
  16. KETAMINE [Concomitant]
     Active Substance: KETAMINE
     Dosage: 2 MG/H
     Route: 042
  17. SPIRONOLACTONE. [Concomitant]
     Active Substance: SPIRONOLACTONE
     Dosage: 1-0-
     Route: 048
  18. BACTRIM [Concomitant]
     Active Substance: SULFAMETHOXAZOLE\TRIMETHOPRIM
     Dosage: 800 MG, ON MONDAYS, WEDNESDAYS, FRIDAYS
     Route: 048
  19. SMOFLIPID [Concomitant]
     Active Substance: FISH OIL\MEDIUM-CHAIN TRIGLYCERIDES\OLIVE OIL\SOYBEAN OIL
     Dosage: 6.5 ML/H
  20. MORPHINE [Concomitant]
     Active Substance: MORPHINE
     Dosage: 0.8 MG/H, PCA
  21. PANTOPRAZOLE [Concomitant]
     Active Substance: PANTOPRAZOLE
     Dosage: 20 MG, DAILY
     Route: 042
  22. CASPOFUNGIN [Concomitant]
     Active Substance: CASPOFUNGIN
     Dosage: 50 MG, DAILY
     Route: 042
  23. EUPRESSYL [URAPIDIL] [Concomitant]
     Active Substance: URAPIDIL
     Dosage: 1-0-1
     Route: 048
  24. ATARAX [ALPRAZOLAM] [Concomitant]
     Active Substance: ALPRAZOLAM
     Dosage: 15 MG, WHEN GOING TO SLEEP, IF NEEDED
     Route: 048

REACTIONS (3)
  - Confusional state [Not Recovered/Not Resolved]
  - Encephalopathy [Not Recovered/Not Resolved]
  - Dysarthria [Not Recovered/Not Resolved]

NARRATIVE: CASE EVENT DATE: 20190612
